FAERS Safety Report 8785050 (Version 2)
Quarter: 2013Q1

REPORT INFORMATION
  Report Type: Report from Study
  Country: DE (occurrence: DE)
  Receive Date: 20120914
  Receipt Date: 20130328
  Transmission Date: 20140127
  Serious: Yes (Hospitalization, Other)
  Sender: FDA-Public Use
  Company Number: DE-ABBOTT-12P-062-0978318-00

PATIENT
  Sex: Female
  Weight: 115 kg

DRUGS (3)
  1. HUMIRA [Suspect]
     Indication: PSORIATIC ARTHROPATHY
     Route: 058
     Dates: start: 20110329, end: 20120820
  2. METHOTREXATE [Suspect]
     Indication: PSORIASIS
     Route: 058
     Dates: start: 20110127, end: 20120820
  3. ANALGESICS [Concomitant]
     Indication: PRODUCT USED FOR UNKNOWN INDICATION

REACTIONS (2)
  - Synovitis [Unknown]
  - Chondromalacia [Unknown]
